FAERS Safety Report 7753653-4 (Version None)
Quarter: 2011Q3

REPORT INFORMATION
  Report Type: 
  Country: None (occurrence: None)
  Receive Date: 20110915
  Receipt Date: 20110912
  Transmission Date: 20111222
  Serious: Yes (Death, Hospitalization, Other)
  Sender: FDA-Public Use
  Company Number: US-ALEXION PHARMACEUTICALS INC.-A201101291

PATIENT
  Sex: Male
  Weight: 70.5 kg

DRUGS (1)
  1. SOLIRIS [Suspect]
     Indication: PAROXYSMAL NOCTURNAL HAEMOGLOBINURIA
     Dosage: UNK
     Route: 042

REACTIONS (8)
  - UNRESPONSIVE TO STIMULI [None]
  - ASTHENIA [None]
  - GASTROENTERITIS CLOSTRIDIAL [None]
  - PNEUMONIA [None]
  - PROSTATE CANCER [None]
  - FULL BLOOD COUNT DECREASED [None]
  - DYSPHAGIA [None]
  - DEATH [None]
